FAERS Safety Report 5231254-X (Version None)
Quarter: 2007Q1

REPORT INFORMATION
  Report Type: 
  Country: None (occurrence: None)
  Receive Date: 20070206
  Receipt Date: 20070131
  Transmission Date: 20070707
  Serious: Yes (Hospitalization)
  Sender: FDA-Public Use
  Company Number: FRWYE456231JAN07

PATIENT
  Age: 5 Year
  Sex: Female
  Weight: 14 kg

DRUGS (1)
  1. ADVIL [Suspect]
     Indication: GASTROENTERITIS
     Dosage: UNKNOWN
     Route: 048
     Dates: start: 20060823, end: 20060824

REACTIONS (5)
  - ANTI-PLATELET ANTIBODY POSITIVE [None]
  - ENZYME ABNORMALITY [None]
  - HAEMODIALYSIS [None]
  - HAEMOLYTIC URAEMIC SYNDROME [None]
  - TUBULOINTERSTITIAL NEPHRITIS [None]
